FAERS Safety Report 13859563 (Version 1)
Quarter: 2017Q3

REPORT INFORMATION
  Report Type: Spontaneous
  Country: ES (occurrence: ES)
  Receive Date: 20170811
  Receipt Date: 20170811
  Transmission Date: 20171127
  Serious: Yes (Other)
  Sender: FDA-Public Use
  Company Number: ES-AMGEN-ESPSP2017082019

PATIENT
  Age: 13 Year
  Sex: Male

DRUGS (3)
  1. CALCIUM [Concomitant]
     Active Substance: CALCIUM
     Dosage: UNK
  2. VITAMIN D [Concomitant]
     Active Substance: CHOLECALCIFEROL
     Dosage: UNK
  3. PROLIA [Suspect]
     Active Substance: DENOSUMAB
     Indication: OSTEOGENESIS IMPERFECTA
     Dosage: 1 MG/KG, Q3MO
     Route: 058
     Dates: start: 20130602

REACTIONS (6)
  - Nephrocalcinosis [Unknown]
  - Hypercalciuria [Unknown]
  - Off label use [Unknown]
  - Hypercalcaemia [Recovered/Resolved]
  - Blood parathyroid hormone decreased [Unknown]
  - Bone pain [Unknown]

NARRATIVE: CASE EVENT DATE: 201611
